FAERS Safety Report 11650776 (Version 2)
Quarter: 2015Q4

REPORT INFORMATION
  Report Type: Spontaneous
  Country: JP (occurrence: JP)
  Receive Date: 20151021
  Receipt Date: 20151030
  Transmission Date: 20160304
  Serious: Yes (Other)
  Sender: FDA-Public Use
  Company Number: JP-MUNDIPHARMA DS AND PHARMACOVIGILANCE-GBR-2015-0031481

PATIENT
  Age: 68 Year
  Sex: Female

DRUGS (17)
  1. NORSPAN [Suspect]
     Active Substance: BUPRENORPHINE
     Indication: OSTEOARTHRITIS
  2. METHYCOBAL [Concomitant]
     Active Substance: METHYLCOBALAMIN
     Dosage: 1500 MCG, DAILY
     Route: 048
  3. ACTOS [Concomitant]
     Active Substance: PIOGLITAZONE HYDROCHLORIDE
     Dosage: 30 MG, DAILY
     Route: 048
  4. AMARYL [Concomitant]
     Active Substance: GLIMEPIRIDE
     Dosage: 3 MG, DAILY
     Route: 048
  5. ADALAT [Concomitant]
     Active Substance: NIFEDIPINE
     Dosage: 5 MG, DAILY
     Route: 048
  6. NORSPAN [Suspect]
     Active Substance: BUPRENORPHINE
     Indication: BACK PAIN
     Dosage: 5 MCG, Q1H
     Route: 062
     Dates: start: 20150828, end: 20150905
  7. LOXONIN [Concomitant]
     Active Substance: LOXOPROFEN SODIUM
     Dosage: 2 DF, DAILY
     Route: 061
  8. NORVASC [Concomitant]
     Active Substance: AMLODIPINE BESYLATE
     Dosage: 5 MG, DAILY
     Route: 048
  9. BASEN [Concomitant]
     Active Substance: VOGLIBOSE
     Dosage: 0.9 MG, DAILY
     Route: 048
  10. YAKUBAN [Concomitant]
     Active Substance: FLURBIPROFEN
     Dosage: 2 DF, DAILY
     Route: 061
  11. TRIAZOLAM. [Concomitant]
     Active Substance: TRIAZOLAM
     Dosage: .25 MG, DAILY
     Route: 048
  12. BEZAFIBRATE [Concomitant]
     Active Substance: BEZAFIBRATE
     Dosage: 400 MG, DAILY
     Route: 048
  13. VOLTAREN [Concomitant]
     Active Substance: DICLOFENAC SODIUM
     Dosage: 75 MG, DAILY
     Route: 048
  14. GASTER [Concomitant]
     Active Substance: FAMOTIDINE
     Dosage: 20 MG, DAILY
     Route: 048
  15. BUFFERIN                           /00009201/ [Concomitant]
     Dosage: 81 MG, DAILY
     Route: 048
  16. CARDENALIN [Concomitant]
     Active Substance: DOXAZOSIN MESYLATE
     Dosage: 1 MG, DAILY
     Route: 048
  17. MICARDIS [Concomitant]
     Active Substance: TELMISARTAN
     Dosage: 40 MG, DAILY
     Route: 048

REACTIONS (4)
  - Hypotension [Recovered/Resolved]
  - Loss of consciousness [Recovered/Resolved]
  - Hypoglycaemia [Recovered/Resolved]
  - Nausea [Recovered/Resolved]

NARRATIVE: CASE EVENT DATE: 20150904
